FAERS Safety Report 20093180 (Version 11)
Quarter: 2023Q1

REPORT INFORMATION
  Report Type: Spontaneous
  Country: US (occurrence: US)
  Receive Date: 20211120
  Receipt Date: 20230307
  Transmission Date: 20230417
  Serious: Yes (Other)
  Sender: FDA-Public Use
  Company Number: US-SA-SAC20211117000155

PATIENT
  Age: 73 Year
  Sex: Female

DRUGS (1)
  1. DUPIXENT [Suspect]
     Active Substance: DUPILUMAB
     Indication: Asthma
     Dosage: 300 MG, QOW
     Route: 058
     Dates: start: 202111

REACTIONS (13)
  - Pneumonia [Unknown]
  - Injection site pain [Unknown]
  - Cough [Unknown]
  - Illness [Recovering/Resolving]
  - Fluid retention [Unknown]
  - Dysphonia [Unknown]
  - Dyspnoea [Unknown]
  - Exposure to SARS-CoV-2 [Recovering/Resolving]
  - Pain [Unknown]
  - Suspected COVID-19 [Unknown]
  - Pain in extremity [Unknown]
  - Vision blurred [Unknown]
  - Oropharyngeal pain [Unknown]

NARRATIVE: CASE EVENT DATE: 20211101
